FAERS Safety Report 13119315 (Version 2)
Quarter: 2017Q1

REPORT INFORMATION
  Report Type: Spontaneous
  Country: IT (occurrence: IT)
  Receive Date: 20170116
  Receipt Date: 20170203
  Transmission Date: 20170428
  Serious: Yes (Hospitalization)
  Sender: FDA-Public Use
  Company Number: PHHY2017IT005164

PATIENT
  Age: 50 Year
  Sex: Male

DRUGS (4)
  1. ORUDIS [Suspect]
     Active Substance: KETOPROFEN
     Indication: PAIN
     Dosage: 1 DF, QD
     Route: 054
     Dates: start: 20161126, end: 20161129
  2. MUSCORIL [Suspect]
     Active Substance: THIOCOLCHICOSIDE
     Indication: MUSCLE TWITCHING
     Dosage: 1 DF, QD
     Route: 030
     Dates: start: 20161122, end: 20161126
  3. TORA-DOL [Suspect]
     Active Substance: KETOROLAC TROMETHAMINE
     Indication: PAIN
     Dosage: 1 DF, QD
     Route: 030
     Dates: start: 20161126, end: 20161129
  4. VOLTAREN [Suspect]
     Active Substance: DICLOFENAC SODIUM
     Indication: MUSCULOSKELETAL PAIN
     Dosage: 1 DF, QD
     Route: 030
     Dates: start: 20161122, end: 20161126

REACTIONS (2)
  - Gastric ulcer [Recovering/Resolving]
  - Gastric mucosa erythema [Recovering/Resolving]

NARRATIVE: CASE EVENT DATE: 20161129
